FAERS Safety Report 5254201-3 (Version None)
Quarter: 2007Q1

REPORT INFORMATION
  Report Type: 
  Country: None (occurrence: None)
  Receive Date: 20070302
  Receipt Date: 20070219
  Transmission Date: 20070707
  Serious: Yes (Other)
  Sender: FDA-Public Use
  Company Number: GBWYE261719JAN07

PATIENT
  Sex: Female

DRUGS (2)
  1. ENBREL [Suspect]
     Indication: DRUG USE FOR UNKNOWN INDICATION
     Dosage: UNKNOWN
     Dates: start: 20060601
  2. ENBREL [Suspect]
     Dosage: UNKNOWN

REACTIONS (2)
  - LOSS OF CONSCIOUSNESS [None]
  - PNEUMONIA [None]
